FAERS Safety Report 5284286-X (Version None)
Quarter: 2007Q1

REPORT INFORMATION
  Report Type: 
  Country: None (occurrence: None)
  Receive Date: 20061227
  Receipt Date: 20060907
  Transmission Date: 20070707
  Serious: Yes (Disabling)
  Sender: FDA-Public Use
  Company Number: A03200605616

PATIENT
  Age: 85 Year
  Sex: Female

DRUGS (5)
  1. AMBIEN [Suspect]
     Indication: SOMNOLENCE
     Dosage: 12.5 MG HS - ORAL
     Route: 048
     Dates: start: 20060905
  2. AMIODARONE HCL [Concomitant]
  3. TRIAMTERENE [Concomitant]
  4. PRAVASTATIN SODIUM [Concomitant]
  5. HYDROXYZINE [Concomitant]

REACTIONS (5)
  - BALANCE DISORDER [None]
  - DIZZINESS [None]
  - FEELING DRUNK [None]
  - HYPOAESTHESIA [None]
  - MALAISE [None]
